FAERS Safety Report 17244495 (Version 5)
Quarter: 2024Q1

REPORT INFORMATION
  Report Type: Spontaneous
  Country: US (occurrence: US)
  Receive Date: 20200107
  Receipt Date: 20240313
  Transmission Date: 20240409
  Serious: Yes (Hospitalization, Other)
  Sender: FDA-Public Use
  Company Number: US-GILEAD-2020-0445101

PATIENT
  Age: 55 Year
  Sex: Male
  Weight: 59.864 kg

DRUGS (25)
  1. ATRIPLA [Suspect]
     Active Substance: EFAVIRENZ\EMTRICITABINE\TENOFOVIR DISOPROXIL FUMARATE
     Indication: HIV infection
     Dosage: 1 DOSAGE FORM, QD
     Route: 048
     Dates: start: 201409, end: 20190921
  2. ATRIPLA [Suspect]
     Active Substance: EFAVIRENZ\EMTRICITABINE\TENOFOVIR DISOPROXIL FUMARATE
     Dosage: UNK
     Route: 048
     Dates: start: 201409, end: 201509
  3. ATRIPLA [Suspect]
     Active Substance: EFAVIRENZ\EMTRICITABINE\TENOFOVIR DISOPROXIL FUMARATE
     Dosage: UNK
     Route: 048
     Dates: start: 20180905, end: 20190921
  4. TRUVADA [Suspect]
     Active Substance: EMTRICITABINE\TENOFOVIR DISOPROXIL FUMARATE
     Indication: HIV infection
     Dosage: UNK
     Route: 048
     Dates: start: 20141018, end: 20141022
  5. TRUVADA [Suspect]
     Active Substance: EMTRICITABINE\TENOFOVIR DISOPROXIL FUMARATE
     Dosage: UNK
     Route: 048
     Dates: start: 20180901, end: 20180903
  6. TRUVADA [Suspect]
     Active Substance: EMTRICITABINE\TENOFOVIR DISOPROXIL FUMARATE
     Dosage: UNK
     Route: 048
     Dates: start: 20181017, end: 20181018
  7. TRUVADA [Suspect]
     Active Substance: EMTRICITABINE\TENOFOVIR DISOPROXIL FUMARATE
     Dosage: UNK
     Route: 048
     Dates: start: 20190905, end: 20190905
  8. DESCOVY [Concomitant]
     Active Substance: EMTRICITABINE\TENOFOVIR ALAFENAMIDE FUMARATE
  9. DIFLUCAN [Concomitant]
     Active Substance: FLUCONAZOLE
  10. BACTRIM [Concomitant]
     Active Substance: SULFAMETHOXAZOLE\TRIMETHOPRIM
  11. AZITHROMYCIN [Concomitant]
     Active Substance: AZITHROMYCIN
  12. PANTOPRAZOLE [Concomitant]
     Active Substance: PANTOPRAZOLE
  13. AMIKACIN [Concomitant]
     Active Substance: AMIKACIN
  14. CLOTRIMAZOLE [Concomitant]
     Active Substance: CLOTRIMAZOLE
  15. ETHAMBUTOL [Concomitant]
     Active Substance: ETHAMBUTOL HYDROCHLORIDE
  16. LEVOFLOXACIN [Concomitant]
     Active Substance: LEVOFLOXACIN
  17. RIFAMPIN [Concomitant]
     Active Substance: RIFAMPIN
  18. NYSTATIN [Concomitant]
     Active Substance: NYSTATIN
  19. ABACAVIR [Concomitant]
     Active Substance: ABACAVIR
  20. ATOVAQUONE [Concomitant]
     Active Substance: ATOVAQUONE
  21. DOLUTEGRAVIR [Concomitant]
     Active Substance: DOLUTEGRAVIR
  22. ONDANSETRON [Concomitant]
     Active Substance: ONDANSETRON
  23. FLUCONAZOLE [Concomitant]
     Active Substance: FLUCONAZOLE
  24. TIVICAY [Concomitant]
     Active Substance: DOLUTEGRAVIR SODIUM
  25. RIFABUTIN [Concomitant]
     Active Substance: RIFABUTIN

REACTIONS (12)
  - Acute kidney injury [Not Recovered/Not Resolved]
  - Chronic kidney disease [Recovered/Resolved]
  - Chronic kidney disease [Not Recovered/Not Resolved]
  - Renal failure [Not Recovered/Not Resolved]
  - Tooth fracture [Unknown]
  - Bone loss [Unknown]
  - Tooth loss [Unknown]
  - Economic problem [Unknown]
  - Anhedonia [Unknown]
  - Emotional distress [Unknown]
  - Anxiety [Unknown]
  - Pain [Unknown]

NARRATIVE: CASE EVENT DATE: 20190904
